FAERS Safety Report 9187834 (Version 2)
Quarter: 2013Q2

REPORT INFORMATION
  Report Type: Spontaneous
  Country: US (occurrence: US)
  Receive Date: 20130325
  Receipt Date: 20130528
  Transmission Date: 20140414
  Serious: Yes (Other)
  Sender: FDA-Public Use
  Company Number: US-PFIZER INC-2013093069

PATIENT
  Age: 33 Year
  Sex: Male

DRUGS (1)
  1. CHANTIX [Suspect]
     Dosage: STARTING PACK 0.5MG AND 1MG CONTINUING MONTH PACK ORALLY TWICE DAILY
     Route: 048
     Dates: start: 20080219, end: 20080318

REACTIONS (2)
  - Loss of consciousness [Unknown]
  - Depression [Unknown]
